FAERS Safety Report 6069711-9 (Version None)
Quarter: 2009Q1

REPORT INFORMATION
  Report Type: 
  Country: None (occurrence: None)
  Receive Date: 20090209
  Receipt Date: 20090202
  Transmission Date: 20090719
  Serious: Yes (Hospitalization, Disabling, Other)
  Sender: FDA-Public Use
  Company Number: US-MERCK-0704USA00204

PATIENT
  Age: 55 Year
  Sex: Female

DRUGS (6)
  1. FOSAMAX [Suspect]
     Indication: OSTEOPOROSIS
     Route: 048
     Dates: start: 19970101, end: 20041101
  2. FOSAMAX [Suspect]
     Route: 048
  3. VICODIN [Concomitant]
     Indication: PAIN
     Route: 065
     Dates: start: 20000101
  4. PAXIL [Concomitant]
     Indication: ANXIETY
     Route: 065
     Dates: start: 20000101
  5. PAXIL [Concomitant]
     Indication: DEPRESSION
     Route: 065
     Dates: start: 20000101
  6. NEURONTIN [Concomitant]
     Indication: FIBROMYALGIA
     Route: 065
     Dates: start: 19990101, end: 20040101

REACTIONS (18)
  - ABDOMINAL PAIN [None]
  - CELLULITIS [None]
  - CEREBRAL ISCHAEMIA [None]
  - COMPRESSION FRACTURE [None]
  - DECUBITUS ULCER [None]
  - FALL [None]
  - FLUID OVERLOAD [None]
  - FRACTURE [None]
  - IMMUNOSUPPRESSION [None]
  - JOINT CONTRACTURE [None]
  - MUSCULOSKELETAL DISORDER [None]
  - NEUROPATHY PERIPHERAL [None]
  - OSTEOMYELITIS [None]
  - OSTEONECROSIS [None]
  - PERIPHERAL VASCULAR DISORDER [None]
  - RED BLOOD CELL SEDIMENTATION RATE INCREASED [None]
  - STATUS MIGRAINOSUS [None]
  - WEIGHT DECREASED [None]
